FAERS Safety Report 14605914 (Version 1)
Quarter: 2018Q1

REPORT INFORMATION
  Report Type: Spontaneous
  Country: ES (occurrence: ES)
  Receive Date: 20180306
  Receipt Date: 20180306
  Transmission Date: 20180509
  Serious: Yes (Other)
  Sender: FDA-Public Use
  Company Number: ES-JNJFOC-20180238973

PATIENT
  Age: 3 Year
  Sex: Female
  Weight: 18 kg

DRUGS (2)
  1. IBUPROFENO [Suspect]
     Active Substance: IBUPROFEN
     Indication: SELF-MEDICATION
     Route: 065
     Dates: start: 20180212, end: 20180212
  2. IBUPROFENO [Suspect]
     Active Substance: IBUPROFEN
     Route: 065

REACTIONS (1)
  - Angioedema [Recovering/Resolving]
